FAERS Safety Report 5637361-1 (Version None)
Quarter: 2008Q1

REPORT INFORMATION
  Report Type: 
  Country: None (occurrence: None)
  Receive Date: 20080225
  Receipt Date: 20080213
  Transmission Date: 20080703
  Serious: Yes (Other)
  Sender: FDA-Public Use
  Company Number: FR-PFIZER INC-2007102125

PATIENT
  Sex: Male
  Weight: 54 kg

DRUGS (8)
  1. NEURONTIN [Suspect]
  2. TRILEPTAL [Interacting]
     Route: 048
  3. URBANYL [Interacting]
     Route: 048
  4. DELURSAN [Interacting]
     Route: 048
  5. FORTUM [Concomitant]
  6. NEBCIN [Concomitant]
  7. TARGOCID [Concomitant]
  8. FUMAFER [Concomitant]

REACTIONS (3)
  - ABNORMAL BEHAVIOUR [None]
  - DRUG INTERACTION [None]
  - HYPOTHERMIA [None]
